FAERS Safety Report 6704529-2 (Version None)
Quarter: 2010Q2

REPORT INFORMATION
  Report Type: 
  Country: None (occurrence: None)
  Receive Date: 20100430
  Receipt Date: 20100420
  Transmission Date: 20101027
  Serious: Yes (Other)
  Sender: FDA-Public Use
  Company Number: PHHY2010US25812

PATIENT
  Sex: Female

DRUGS (4)
  1. RECLAST [Suspect]
  2. IBUPROFEN [Concomitant]
  3. TYLENOL-500 [Concomitant]
  4. COUMADIN [Concomitant]

REACTIONS (7)
  - CHEST PAIN [None]
  - DEPRESSED MOOD [None]
  - DYSPNOEA [None]
  - EYE PAIN [None]
  - PAIN [None]
  - WEIGHT INCREASED [None]
  - WHEEZING [None]
